FAERS Safety Report 5095071-6 (Version None)
Quarter: 2006Q3

REPORT INFORMATION
  Report Type: 
  Country: None (occurrence: None)
  Receive Date: 20060901
  Receipt Date: 20030310
  Transmission Date: 20061208
  Serious: Yes (Death, Hospitalization)
  Sender: FDA-Public Use
  Company Number: PHHO2003ES03342

PATIENT
  Age: 50 Year
  Sex: Male
  Weight: 56.2 kg

DRUGS (6)
  1. SIMULECT [Suspect]
     Indication: LIVER TRANSPLANT
     Dosage: 20 MG, (DAY 0)
     Route: 042
     Dates: start: 20030524, end: 20030524
  2. SIMULECT [Suspect]
     Dosage: 20 MG, ONCE/SINGLE
     Route: 042
     Dates: start: 20021108, end: 20021108
  3. SIMULECT [Suspect]
     Dosage: 20 MG, ONCE/SINGLE
     Route: 042
     Dates: start: 20021112, end: 20021112
  4. PROGRAF [Concomitant]
     Indication: LIVER TRANSPLANT
     Dosage: 4 MG / DAY
     Route: 048
  5. PROGRAF [Concomitant]
     Dosage: 2 MG / DAY
     Route: 048
     Dates: start: 20021223
  6. NEORAL [Suspect]
     Indication: LIVER TRANSPLANT

REACTIONS (29)
  - ABDOMINAL PAIN [None]
  - ALANINE AMINOTRANSFERASE INCREASED [None]
  - ASCITES [None]
  - CARDIAC FAILURE [None]
  - CHOLANGITIS [None]
  - DIARRHOEA [None]
  - DISEASE RECURRENCE [None]
  - ENCEPHALOPATHY [None]
  - ENTEROCOCCAL INFECTION [None]
  - HAEMATEMESIS [None]
  - HEPATIC CIRRHOSIS [None]
  - HEPATIC ENZYME ABNORMAL [None]
  - HEPATITIS C [None]
  - HEPATITIS VIRAL [None]
  - HYPERTENSION [None]
  - ISCHAEMIA [None]
  - LIVER TRANSPLANT [None]
  - LIVER TRANSPLANT REJECTION [None]
  - MALAISE [None]
  - OEDEMA [None]
  - PLEURAL EFFUSION [None]
  - PROCEDURAL HYPERTENSION [None]
  - PYREXIA [None]
  - RENAL FAILURE [None]
  - STAPHYLOCOCCAL INFECTION [None]
  - STAPHYLOCOCCAL SEPSIS [None]
  - TRANSPLANT REJECTION [None]
  - URINARY TRACT INFECTION [None]
  - URINARY TRACT INFECTION ENTEROCOCCAL [None]
